FAERS Safety Report 21470344 (Version 1)
Quarter: 2022Q4

REPORT INFORMATION
  Report Type: Other
  Country: LT (occurrence: LT)
  Receive Date: 20221018
  Receipt Date: 20221018
  Transmission Date: 20230113
  Serious: Yes (Other)
  Sender: FDA-Public Use
  Company Number: LT-BoehringerIngelheim-2022-BI-197064

PATIENT

DRUGS (1)
  1. ALTEPLASE [Suspect]
     Active Substance: ALTEPLASE
     Indication: Pulmonary embolism
     Dosage: 1 MG/H INFUSION
     Route: 065

REACTIONS (2)
  - Anaemia [Unknown]
  - Haematoma [Unknown]
